FAERS Safety Report 4418217-9 (Version None)
Quarter: 2004Q3

REPORT INFORMATION
  Report Type: 
  Country: None (occurrence: None)
  Receive Date: 20040809
  Receipt Date: 20040107
  Transmission Date: 20050211
  Serious: No
  Sender: FDA-Public Use
  Company Number: US-GLAXOSMITHKLINE-A0491933A

PATIENT
  Age: 40 Year
  Sex: Male

DRUGS (1)
  1. PAXIL [Suspect]
     Dosage: 12.5MG SINGLE DOSE
     Route: 048
     Dates: start: 20040106

REACTIONS (1)
  - DIZZINESS [None]
